FAERS Safety Report 6427368-9 (Version None)
Quarter: 2009Q4

REPORT INFORMATION
  Report Type: 
  Country: None (occurrence: None)
  Receive Date: 20091104
  Receipt Date: 20091027
  Transmission Date: 20100525
  Serious: Yes (Other)
  Sender: FDA-Public Use
  Company Number: FR-AMGEN-UK371264

PATIENT
  Sex: Female
  Weight: 77 kg

DRUGS (4)
  1. ARANESP [Suspect]
     Indication: ANAEMIA OF MALIGNANT DISEASE
     Route: 065
  2. GRANOCYTE [Concomitant]
     Route: 065
     Dates: start: 20091015, end: 20091017
  3. VENOFER [Concomitant]
     Route: 065
     Dates: start: 20090715, end: 20091014
  4. UNSPECIFIED ANTINEOPLASTIC AGENT [Concomitant]
     Route: 065

REACTIONS (4)
  - ERYTHEMA [None]
  - OEDEMA PERIPHERAL [None]
  - PAIN [None]
  - PYREXIA [None]
